FAERS Safety Report 12725618 (Version 1)
Quarter: 2016Q3

REPORT INFORMATION
  Report Type: Spontaneous
  Country: US (occurrence: US)
  Receive Date: 20160908
  Receipt Date: 20160908
  Transmission Date: 20161109
  Serious: Yes (Hospitalization, Other)
  Sender: FDA-Public Use
  Company Number: US-AMGEN-USASP2016119584

PATIENT
  Age: 53 Year
  Sex: Male
  Weight: 44.44 kg

DRUGS (5)
  1. PROCRIT [Suspect]
     Active Substance: ERYTHROPOIETIN
     Dosage: 4000 UNITS, TUESDAY, THURSDAY, SATURDAY
     Route: 065
     Dates: start: 20160627, end: 20160903
  2. PROCRIT [Suspect]
     Active Substance: ERYTHROPOIETIN
     Indication: NEPHROGENIC ANAEMIA
     Dosage: 8,000 UNITS, UNK
     Route: 065
     Dates: start: 201604, end: 201604
  3. LOVASTATIN. [Concomitant]
     Active Substance: LOVASTATIN
     Dosage: UNK
  4. PROCRIT [Suspect]
     Active Substance: ERYTHROPOIETIN
     Dosage: 10,000 UNITS, UNK
     Route: 065
     Dates: start: 201604, end: 201604
  5. LEVAQUIN [Concomitant]
     Active Substance: LEVOFLOXACIN
     Dosage: UNK

REACTIONS (4)
  - Parotitis [Unknown]
  - Refusal of treatment by patient [Unknown]
  - Hyperkalaemia [Unknown]
  - Salivary gland disorder [Unknown]

NARRATIVE: CASE EVENT DATE: 2016
